FAERS Safety Report 8576075 (Version 4)
Quarter: 2012Q4

REPORT INFORMATION
  Report Type: 
  Country: US (occurrence: US)
  Receive Date: 20120523
  Receipt Date: 20120920
  Transmission Date: 20130627
  Serious: Yes (Other)
  Sender: FDA-Public Use
  Company Number: US-CELGENEUS-163-21880-12052206

PATIENT
  Age: 67 None
  Sex: Male
  Weight: 83.9 kg

DRUGS (1)
  1. REVLIMID [Suspect]
     Indication: MULTIPLE MYELOMA
     Dosage: 10 Milligram
     Route: 048
     Dates: start: 20110503

REACTIONS (3)
  - Diabetes mellitus [Unknown]
  - Fatigue [Unknown]
  - Nasopharyngitis [Unknown]
